FAERS Safety Report 7373054-0 (Version None)
Quarter: 2011Q1

REPORT INFORMATION
  Report Type: 
  Country: None (occurrence: None)
  Receive Date: 20110314
  Receipt Date: 20110302
  Transmission Date: 20110831
  Serious: Yes (Hospitalization)
  Sender: FDA-Public Use
  Company Number: 027239

PATIENT
  Sex: Female
  Weight: 97.2 kg

DRUGS (3)
  1. CIMZIA [Suspect]
     Indication: CROHN'S DISEASE
     Dosage: 400 MG 1X4 WEEKS, RECEIVED AN INJECTION OF CIMZIA ON 31-JAN-2011, SUBCUTANEOUS
     Route: 058
     Dates: start: 20090601
  2. ENTOCORT EC [Concomitant]
  3. PENTASA [Concomitant]

REACTIONS (2)
  - INTESTINAL STENOSIS [None]
  - SMALL INTESTINAL OBSTRUCTION [None]
